FAERS Safety Report 6553977-2 (Version None)
Quarter: 2010Q1

REPORT INFORMATION
  Report Type: 
  Country: None (occurrence: None)
  Receive Date: 20100127
  Receipt Date: 20100121
  Transmission Date: 20100710
  Serious: Yes (Life-Threatening, Hospitalization)
  Sender: FDA-Public Use
  Company Number: FR-ASTRAZENECA-2009CG00607

PATIENT
  Age: 17993 Day
  Sex: Female

DRUGS (4)
  1. ARIMIDEX [Suspect]
     Indication: BREAST CANCER
     Route: 048
     Dates: start: 20060701, end: 20080301
  2. FLUOROURACIL [Suspect]
     Indication: BREAST CANCER
     Route: 042
     Dates: start: 20060301, end: 20060601
  3. ENDOXAN [Suspect]
     Indication: PHYSICAL BREAST EXAMINATION ABNORMAL
     Route: 042
     Dates: start: 20060301, end: 20060601
  4. EPIRUBICINE DAKOTA PHARM [Suspect]
     Indication: BREAST CANCER
     Route: 042
     Dates: start: 20060301, end: 20060601

REACTIONS (1)
  - ACUTE MYELOID LEUKAEMIA [None]
